FAERS Safety Report 16709663 (Version 2)
Quarter: 2019Q3

REPORT INFORMATION
  Report Type: Report from Study
  Country: US (occurrence: US)
  Receive Date: 20190816
  Receipt Date: 20190822
  Transmission Date: 20191004
  Serious: Yes (Hospitalization)
  Sender: FDA-Public Use
  Company Number: US-JNJFOC-20190816243

PATIENT
  Age: 19 Year
  Sex: Male
  Weight: 44.7 kg

DRUGS (5)
  1. STELARA [Concomitant]
     Active Substance: USTEKINUMAB
     Route: 058
     Dates: start: 20130531, end: 20140421
  2. INFLIXIMAB, RECOMBINANT [Suspect]
     Active Substance: INFLIXIMAB
     Indication: INFLAMMATORY BOWEL DISEASE
     Route: 042
     Dates: start: 20080117, end: 20081010
  3. OMALIZUMAB. [Concomitant]
     Active Substance: OMALIZUMAB
  4. STELARA [Concomitant]
     Active Substance: USTEKINUMAB
     Route: 058
     Dates: start: 20190516
  5. INFLIXIMAB, RECOMBINANT [Suspect]
     Active Substance: INFLIXIMAB
     Route: 042
     Dates: start: 20151120, end: 20160510

REACTIONS (1)
  - Crohn^s disease [Recovered/Resolved]

NARRATIVE: CASE EVENT DATE: 20190724
